FAERS Safety Report 16641323 (Version 6)
Quarter: 2022Q2

REPORT INFORMATION
  Report Type: Report from Study
  Country: JP (occurrence: JP)
  Receive Date: 20190729
  Receipt Date: 20220624
  Transmission Date: 20220721
  Serious: Yes (Life-Threatening, Hospitalization, Other)
  Sender: FDA-Public Use
  Company Number: JP-VIIV HEALTHCARE LIMITED-JP2019JPN135913

PATIENT

DRUGS (14)
  1. DOLUTEGRAVIR [Suspect]
     Active Substance: DOLUTEGRAVIR
     Indication: HIV infection
     Dosage: 50 MG, 1D
     Route: 048
     Dates: start: 20150604, end: 20190123
  2. JULUCA [Suspect]
     Active Substance: DOLUTEGRAVIR SODIUM\RILPIVIRINE HYDROCHLORIDE
     Indication: HIV infection
     Dosage: 1 DF, 1D
     Route: 048
     Dates: start: 20190124
  3. EDURANT [Suspect]
     Active Substance: RILPIVIRINE HYDROCHLORIDE
     Indication: HIV infection
     Dosage: 1 DF, 1D
     Route: 048
     Dates: start: 20180906, end: 20190123
  4. ZIAGEN [Concomitant]
     Active Substance: ABACAVIR SULFATE
     Indication: HIV infection
     Dosage: 600 MG, 1D
     Dates: start: 20080303, end: 20180906
  5. VIREAD [Concomitant]
     Active Substance: TENOFOVIR DISOPROXIL FUMARATE
     Indication: HIV infection
     Dosage: 300 MG, 1D
     Dates: start: 20080303, end: 20180906
  6. CANDESARTAN CILEXETIL [Concomitant]
     Active Substance: CANDESARTAN CILEXETIL
     Dosage: UNK
     Dates: end: 20190123
  7. AMLODIPINE [Concomitant]
     Active Substance: AMLODIPINE BESYLATE
     Dosage: UNK
  8. ZOLPIDEM TARTRATE [Concomitant]
     Active Substance: ZOLPIDEM TARTRATE
     Dosage: UNK
  9. FAMOTIDINE [Concomitant]
     Active Substance: FAMOTIDINE
     Dosage: UNK
     Dates: end: 20180905
  10. LEVOCARNITINE HYDROCHLORIDE [Concomitant]
     Active Substance: LEVOCARNITINE HYDROCHLORIDE
     Indication: Prophylaxis
     Dosage: UNK
  11. REBAMIPIDE [Concomitant]
     Active Substance: REBAMIPIDE
     Dosage: UNK
     Dates: end: 20190123
  12. ROZEREM [Concomitant]
     Active Substance: RAMELTEON
     Dosage: UNK
     Dates: end: 20190123
  13. OLMESARTAN OD TABLETS [Concomitant]
     Dosage: UNK
     Dates: start: 20190124
  14. ELOCTATE [Concomitant]
     Active Substance: (1-743)-(1638-2332)-BLOOD-COAGULATION FACTOR VIII (SYNTHETIC HUMAN) FUSION PROTEIN WITH IMMUNOGLOBUL
     Dosage: UNK
     Dates: start: 20190124

REACTIONS (2)
  - Cerebral haemorrhage [Recovering/Resolving]
  - Pulpitis dental [Recovered/Resolved]

NARRATIVE: CASE EVENT DATE: 20181122
